FAERS Safety Report 20376641 (Version 1)
Quarter: 2022Q1

REPORT INFORMATION
  Report Type: Spontaneous
  Country: US (occurrence: None)
  Receive Date: 20220125
  Receipt Date: 20220125
  Transmission Date: 20220423
  Serious: No
  Sender: FDA-Public Use
  Company Number: None

PATIENT
  Sex: Female
  Weight: 77.11 kg

DRUGS (3)
  1. NEURONTIN [Suspect]
     Active Substance: GABAPENTIN
     Indication: Affective disorder
     Dosage: FREQUENCY : WEEKLY;?
  2. NEURONTIN [Suspect]
     Active Substance: GABAPENTIN
     Indication: Pain
  3. ZOLOFT [Suspect]
     Active Substance: SERTRALINE HYDROCHLORIDE

REACTIONS (2)
  - Pregnancy [None]
  - Maternal exposure timing unspecified [None]
